FAERS Safety Report 24910898 (Version 2)
Quarter: 2025Q2

REPORT INFORMATION
  Report Type: Spontaneous
  Country: US (occurrence: US)
  Receive Date: 20250131
  Receipt Date: 20250630
  Transmission Date: 20250717
  Serious: No
  Sender: MERCK SHARP & DOHME LLC
  Company Number: US-009507513-2501USA008929

PATIENT
  Sex: Female
  Weight: 92.5 kg

DRUGS (33)
  1. SOTATERCEPT [Suspect]
     Active Substance: SOTATERCEPT
  2. SOTATERCEPT [Suspect]
     Active Substance: SOTATERCEPT
  3. SOTATERCEPT [Suspect]
     Active Substance: SOTATERCEPT
  4. SOTATERCEPT [Suspect]
     Active Substance: SOTATERCEPT
  5. FUROSEMIDE [Concomitant]
     Active Substance: FUROSEMIDE
  6. FAMOTIDINE [Concomitant]
     Active Substance: FAMOTIDINE
  7. VANCOMYCIN HYDROCHLORIDE [Concomitant]
     Active Substance: VANCOMYCIN HYDROCHLORIDE
  8. VITAMINS NOS [Concomitant]
     Active Substance: VITAMINS
     Route: 048
  9. TYLENOL [Concomitant]
     Active Substance: ACETAMINOPHEN
  10. EPINEPHRINE [Concomitant]
     Active Substance: EPINEPHRINE
  11. NORETHINDRONE [Concomitant]
     Active Substance: NORETHINDRONE
  12. OPSUMIT [Concomitant]
     Active Substance: MACITENTAN
  13. FLAXSEED [Concomitant]
     Active Substance: FLAX SEED
  14. VITAMIN D2 [Concomitant]
     Active Substance: ERGOCALCIFEROL
  15. REVATIO [Concomitant]
     Active Substance: SILDENAFIL CITRATE
  16. ETODOLAC [Concomitant]
     Active Substance: ETODOLAC
  17. CHLORHEXIDINE GLUCONATE [Concomitant]
     Active Substance: CHLORHEXIDINE GLUCONATE
  18. MULTIVITAMINS [ASCORBIC ACID;ERGOCALCIFEROL;FOLIC ACID;NICOTINAMIDE... [Concomitant]
     Route: 048
  19. DOCONEXENT\ICOSAPENT [Concomitant]
     Active Substance: DOCONEXENT\ICOSAPENT
  20. FLORASTOR [SACCHAROMYCES BOULARDII] [Concomitant]
  21. MAGNESIUM CHLORIDE [Concomitant]
     Active Substance: MAGNESIUM CHLORIDE
  22. IRONUP [Concomitant]
  23. D 400 [Concomitant]
  24. TRANEXAMIC ACID [Concomitant]
     Active Substance: TRANEXAMIC ACID
  25. DEXAMETHASONE [Concomitant]
     Active Substance: DEXAMETHASONE
  26. OXYGEN [Concomitant]
     Active Substance: OXYGEN
  27. PAROXETINE HYDROCHLORIDE [Concomitant]
     Active Substance: PAROXETINE HYDROCHLORIDE
  28. DIGOXIN [Concomitant]
     Active Substance: DIGOXIN
  29. CYCLOBENZAPRINE HYDROCHLORIDE [Concomitant]
     Active Substance: CYCLOBENZAPRINE HYDROCHLORIDE
  30. TRIAMCINOLONE ACETONIDE [Concomitant]
     Active Substance: TRIAMCINOLONE ACETONIDE
  31. TYVASO [Suspect]
     Active Substance: TREPROSTINIL
     Indication: Pulmonary arterial hypertension
     Dosage: CONCENTRATION: 0.6 MG/ML, 72 UG (12 BREATHS), QID
     Route: 055
  32. TYVASO [Suspect]
     Active Substance: TREPROSTINIL
     Indication: Pulmonary arterial hypertension
     Route: 055
     Dates: start: 20140108
  33. TYVASO [Suspect]
     Active Substance: TREPROSTINIL
     Indication: Pulmonary arterial hypertension
     Dosage: CONCENTRATION: 0.6 MG/ML; 54 UG (9 BREATHS), QID
     Route: 055

REACTIONS (1)
  - Epistaxis [Recovered/Resolved]
